FAERS Safety Report 15742539 (Version 2)
Quarter: 2019Q1

REPORT INFORMATION
  Report Type: Spontaneous
  Country: US (occurrence: US)
  Receive Date: 20181219
  Receipt Date: 20190309
  Transmission Date: 20190417
  Serious: Yes (Other)
  Sender: FDA-Public Use
  Company Number: PHEH2018US053719

PATIENT
  Sex: Female

DRUGS (1)
  1. TASIGNA [Suspect]
     Active Substance: NILOTINIB
     Indication: CHRONIC MYELOID LEUKAEMIA
     Dosage: 01 DF, BID
     Route: 048
     Dates: start: 20160511, end: 201709

REACTIONS (13)
  - Cardiovascular disorder [Unknown]
  - Transient ischaemic attack [Unknown]
  - Myocardial infarction [Unknown]
  - Obesity [Unknown]
  - Oral candidiasis [Unknown]
  - Hepatic steatosis [Unknown]
  - Coronary artery disease [Unknown]
  - Cerebrovascular accident [Unknown]
  - Thrombosis [Unknown]
  - Peripheral arterial occlusive disease [Unknown]
  - Dyslipidaemia [Unknown]
  - Hyperglycaemia [Unknown]
  - Anaemia [Unknown]
